FAERS Safety Report 19450527 (Version 1)
Quarter: 2021Q2

REPORT INFORMATION
  Report Type: Spontaneous
  Country: US (occurrence: US)
  Receive Date: 20210622
  Receipt Date: 20210622
  Transmission Date: 20210717
  Serious: Yes (Hospitalization, Other)
  Sender: FDA-Public Use
  Company Number: US-LUPIN PHARMACEUTICALS INC.-2021-09920

PATIENT
  Age: 12 Year
  Sex: Male

DRUGS (12)
  1. METRONIDAZOLE. [Suspect]
     Active Substance: METRONIDAZOLE
     Indication: CHRONIC GRANULOMATOUS DISEASE
     Dosage: UNK
     Route: 065
  2. AMOXICILLIN. [Concomitant]
     Active Substance: AMOXICILLIN
     Indication: CHRONIC GRANULOMATOUS DISEASE
     Dosage: UNK
     Route: 065
  3. AMOXICILLIN. [Concomitant]
     Active Substance: AMOXICILLIN
     Indication: CROHN^S DISEASE
  4. MESALAMINE. [Concomitant]
     Active Substance: MESALAMINE
     Indication: CROHN^S DISEASE
  5. PREDNISONE. [Concomitant]
     Active Substance: PREDNISONE
     Indication: CROHN^S DISEASE
  6. VANCOMYCIN [Concomitant]
     Active Substance: VANCOMYCIN
     Indication: CHRONIC GRANULOMATOUS DISEASE
     Dosage: UNK
     Route: 065
  7. DOXYCYCLINE. [Concomitant]
     Active Substance: DOXYCYCLINE
     Indication: CROHN^S DISEASE
  8. MESALAMINE. [Concomitant]
     Active Substance: MESALAMINE
     Indication: CHRONIC GRANULOMATOUS DISEASE
     Dosage: UNK
     Route: 065
  9. PREDNISONE. [Concomitant]
     Active Substance: PREDNISONE
     Indication: CHRONIC GRANULOMATOUS DISEASE
     Dosage: UNK
     Route: 042
  10. VANCOMYCIN [Concomitant]
     Active Substance: VANCOMYCIN
     Indication: CROHN^S DISEASE
  11. METRONIDAZOLE. [Suspect]
     Active Substance: METRONIDAZOLE
     Indication: CROHN^S DISEASE
  12. DOXYCYCLINE. [Concomitant]
     Active Substance: DOXYCYCLINE
     Indication: CHRONIC GRANULOMATOUS DISEASE
     Dosage: UNK
     Route: 065

REACTIONS (2)
  - Neurotoxicity [Recovered/Resolved]
  - Toxicity to various agents [Recovered/Resolved]
